FAERS Safety Report 6785015-0 (Version None)
Quarter: 2010Q2

REPORT INFORMATION
  Report Type: 
  Country: None (occurrence: None)
  Receive Date: 20100618
  Receipt Date: 20100609
  Transmission Date: 20101027
  Serious: Yes (Hospitalization)
  Sender: FDA-Public Use
  Company Number: 2010EU002389

PATIENT
  Age: 63 Year
  Sex: Female

DRUGS (8)
  1. PROTOPIC [Suspect]
     Dosage: TOPICAL
     Route: 061
     Dates: start: 20050401, end: 20050901
  2. MEDROL [Suspect]
     Dosage: ORAL
     Route: 048
     Dates: start: 19940101, end: 20100301
  3. PLAQUENIL [Suspect]
     Dosage: ORAL
     Route: 048
     Dates: start: 20000701, end: 20050401
  4. METHOTREXATE [Suspect]
     Dosage: ORAL
     Route: 048
     Dates: start: 20000701, end: 20050401
  5. DISULONE (DAPSONE, FEEROUS OXALATE) [Suspect]
     Dosage: ORAL
     Route: 048
     Dates: start: 20060701, end: 20100301
  6. REMICADE [Suspect]
     Dosage: IV NOS
     Route: 042
     Dates: start: 20100101, end: 20100201
  7. THALIDOMIDE [Suspect]
     Dosage: ORAL
     Route: 048
     Dates: start: 20040401, end: 20050401
  8. MINCOYCLINE (MINCOYCLINE) [Suspect]
     Dosage: ORAL
     Route: 048
     Dates: start: 20050901, end: 20060601

REACTIONS (1)
  - CERVIX CARCINOMA [None]
